FAERS Safety Report 19815841 (Version 2)
Quarter: 2021Q3

REPORT INFORMATION
  Report Type: Other
  Country: US (occurrence: US)
  Receive Date: 20210910
  Receipt Date: 20210923
  Transmission Date: 20211014
  Serious: Yes (Hospitalization)
  Sender: FDA-Public Use
  Company Number: US-ROCHE-2904948

PATIENT
  Sex: Male

DRUGS (2)
  1. EVRYSDI [Suspect]
     Active Substance: RISDIPLAM
     Dosage: 60 MG/80 ML ORAL SOLUTION
     Route: 048
  2. EVRYSDI [Suspect]
     Active Substance: RISDIPLAM
     Indication: SPINAL MUSCULAR ATROPHY
     Dosage: TAKE 1.5 ML (1.1 MG) BY FEEDING TUBE ONCE DAILY ;ONGOING: UNKNOWN
     Route: 048

REACTIONS (4)
  - Alopecia [Unknown]
  - Respiratory syncytial virus infection [Unknown]
  - Influenza [Unknown]
  - Pyrexia [Unknown]
